FAERS Safety Report 7986613-9 (Version None)
Quarter: 2011Q4

REPORT INFORMATION
  Report Type: 
  Country: None (occurrence: None)
  Receive Date: 20111216
  Receipt Date: 20110204
  Transmission Date: 20120403
  Serious: No
  Sender: FDA-Public Use
  Company Number: US-BRISTOL-MYERS SQUIBB COMPANY-15531718

PATIENT
  Sex: Female

DRUGS (1)
  1. ABILIFY [Suspect]
     Indication: DEPRESSION
     Dosage: 2MG DAILY, THEN MOVED TO 5MG DAILY, AFTER A COUPLE OF WEEKS THEN MOVED TO 10MG.

REACTIONS (3)
  - DRUG INEFFECTIVE [None]
  - MALAISE [None]
  - WEIGHT INCREASED [None]
